FAERS Safety Report 8346578-7 (Version None)
Quarter: 2012Q2

REPORT INFORMATION
  Report Type: 
  Country: None (occurrence: None)
  Receive Date: 20120509
  Receipt Date: 20120502
  Transmission Date: 20120825
  Serious: Yes (Hospitalization, Other)
  Sender: FDA-Public Use
  Company Number: PHHY2012CA029362

PATIENT
  Sex: Female

DRUGS (1)
  1. SANDOSTATIN LAR [Suspect]
     Indication: ENZYME ABNORMALITY
     Dosage: 20 MG, QMO
     Route: 030
     Dates: start: 20110528

REACTIONS (4)
  - HAEMOGLOBIN DECREASED [None]
  - LIGAMENT SPRAIN [None]
  - FALL [None]
  - LOWER LIMB FRACTURE [None]
